FAERS Safety Report 12840557 (Version 3)
Quarter: 2018Q1

REPORT INFORMATION
  Report Type: Spontaneous
  Country: IR (occurrence: IR)
  Receive Date: 20161012
  Receipt Date: 20180115
  Transmission Date: 20180508
  Serious: Yes (Life-Threatening, Hospitalization, Other)
  Sender: FDA-Public Use
  Company Number: IR-ABBVIE-16P-080-1750819-00

PATIENT
  Age: 60 Year
  Sex: Male

DRUGS (4)
  1. VALPROIC ACID. [Suspect]
     Active Substance: VALPROIC ACID
     Route: 048
  2. VALPROIC ACID. [Suspect]
     Active Substance: VALPROIC ACID
     Indication: CONVULSION PROPHYLAXIS
     Route: 048
  3. LANTUS [Concomitant]
     Active Substance: INSULIN GLARGINE
     Indication: PRODUCT USED FOR UNKNOWN INDICATION
  4. NOVORAPID [Concomitant]
     Active Substance: INSULIN ASPART
     Indication: PRODUCT USED FOR UNKNOWN INDICATION

REACTIONS (21)
  - Lymph node pain [Recovering/Resolving]
  - Haemoglobin decreased [Recovering/Resolving]
  - Hepatitis [Recovering/Resolving]
  - Pruritus [Recovering/Resolving]
  - Liver tenderness [Recovering/Resolving]
  - Transaminases increased [Recovering/Resolving]
  - Pleural effusion [Recovering/Resolving]
  - Blister [Recovering/Resolving]
  - Oesophagitis [Recovering/Resolving]
  - Lymphocytosis [Recovering/Resolving]
  - Thrombocytopenia [Recovering/Resolving]
  - Drug reaction with eosinophilia and systemic symptoms [Recovering/Resolving]
  - Purpura [Recovering/Resolving]
  - Rash generalised [Recovering/Resolving]
  - Pyrexia [Recovering/Resolving]
  - Lymphadenopathy [Recovering/Resolving]
  - Abdominal distension [Recovering/Resolving]
  - Rash erythematous [Recovering/Resolving]
  - Petechiae [Recovering/Resolving]
  - Rash [Recovering/Resolving]
  - Rash maculo-papular [Recovering/Resolving]
